FAERS Safety Report 10516262 (Version 1)
Quarter: 2014Q4

REPORT INFORMATION
  Report Type: Spontaneous
  Country: US (occurrence: US)
  Receive Date: 20141014
  Receipt Date: 20141014
  Transmission Date: 20150528
  Serious: No
  Sender: FDA-Public Use
  Company Number: US-BAUSCH-SYM-2014-18422

PATIENT
  Sex: Male

DRUGS (13)
  1. OFLOXACIN. [Suspect]
     Active Substance: OFLOXACIN
     Indication: EYE INFECTION
  2. NASONEX [Suspect]
     Active Substance: MOMETASONE FUROATE
     Indication: HYPERSENSITIVITY
  3. TOBRAMYCIN DEXAMETHASONE [Suspect]
     Active Substance: DEXAMETHASONE\TOBRAMYCIN
     Indication: EYE INFECTION
  4. PATADAY [Suspect]
     Active Substance: OLOPATADINE HYDROCHLORIDE
     Indication: EYE INFECTION
  5. AZOPT [Suspect]
     Active Substance: BRINZOLAMIDE
     Indication: EYE INFECTION
  6. LEVOTHYROXINE [Concomitant]
     Active Substance: LEVOTHYROXINE
     Indication: PRODUCT USED FOR UNKNOWN INDICATION
  7. BRIMONIDINE [Suspect]
     Active Substance: BRIMONIDINE\BRIMONIDINE TARTRATE
     Indication: EYE INFECTION
  8. TRAVATAN [Suspect]
     Active Substance: TRAVOPROST
     Indication: EYE INFECTION
  9. BRIMONIDINE TARTRATE. [Suspect]
     Active Substance: BRIMONIDINE TARTRATE
     Indication: EYE INFECTION
  10. TOBRADEX [Suspect]
     Active Substance: DEXAMETHASONE\TOBRAMYCIN
     Indication: EYE INFECTION
  11. ALPHAGAN P [Suspect]
     Active Substance: BRIMONIDINE TARTRATE
     Indication: EYE INFECTION
  12. LISINOPRIL. [Concomitant]
     Active Substance: LISINOPRIL
     Indication: PRODUCT USED FOR UNKNOWN INDICATION
  13. TIMOLOL [Suspect]
     Active Substance: TIMOLOL
     Indication: EYE INFECTION
     Route: 047

REACTIONS (3)
  - Condition aggravated [Unknown]
  - Off label use [Unknown]
  - Eye infection [Unknown]
